FAERS Safety Report 7831100-1 (Version None)
Quarter: 2011Q4

REPORT INFORMATION
  Report Type: 
  Country: None (occurrence: None)
  Receive Date: 20111021
  Receipt Date: 20111012
  Transmission Date: 20120403
  Serious: Yes (Hospitalization)
  Sender: FDA-Public Use
  Company Number: JP-BAXTER-ONC000543

PATIENT
  Age: 27 Year
  Sex: Female

DRUGS (9)
  1. CYCLOPHOSPHAMIDE [Suspect]
     Indication: LUPUS NEPHRITIS
     Route: 041
     Dates: start: 20020601, end: 20020801
  2. TORSEMIDE [Concomitant]
     Indication: LUPUS NEPHRITIS
     Route: 048
     Dates: start: 19971001
  3. LORCAM [Concomitant]
     Indication: ARTHRALGIA
     Route: 048
     Dates: start: 20010401
  4. PERSANTIN [Concomitant]
     Indication: LUPUS NEPHRITIS
     Route: 048
     Dates: start: 20010401
  5. WARFARIN SODIUM [Concomitant]
     Indication: LUPUS NEPHRITIS
     Route: 048
     Dates: start: 19971001
  6. PRORENAL [Concomitant]
     Indication: RAYNAUD'S PHENOMENON
     Route: 048
     Dates: start: 19971001
  7. METHOTREXATE [Suspect]
     Indication: ARTHRALGIA
     Route: 048
     Dates: start: 19980301, end: 20021004
  8. PREDNISOLONE [Concomitant]
     Indication: SYSTEMIC LUPUS ERYTHEMATOSUS
     Route: 048
     Dates: start: 19910101
  9. BEZATOL - SLOW RELEASE [Concomitant]
     Indication: HYPERLIPIDAEMIA
     Route: 048
     Dates: start: 19971001

REACTIONS (3)
  - MYELODYSPLASTIC SYNDROME [None]
  - PANCYTOPENIA [None]
  - DENTAL CARIES [None]
